FAERS Safety Report 6491780-2 (Version None)
Quarter: 2009Q4

REPORT INFORMATION
  Report Type: 
  Country: None (occurrence: None)
  Receive Date: 20091210
  Receipt Date: 20091130
  Transmission Date: 20100525
  Serious: No
  Sender: FDA-Public Use
  Company Number: DSU-2009-02767

PATIENT
  Age: 90 Year
  Sex: Female
  Weight: 50.8029 kg

DRUGS (5)
  1. WELCHOL [Suspect]
     Indication: DIARRHOEA
     Dosage: 2500 MG (1250 MG,BID),PER ORAL
     Route: 048
     Dates: start: 20090101
  2. SYNTHROID (LEVOTHYROXINE SODIUM) (LEVOTHYROXINE SODIUM) [Concomitant]
  3. WARFARIN SODIUM [Concomitant]
  4. METOPROLOL SUCCINATE [Concomitant]
  5. PROVIGIL [Concomitant]

REACTIONS (3)
  - DIARRHOEA [None]
  - DISEASE RECURRENCE [None]
  - FOREIGN BODY [None]
